FAERS Safety Report 6962646-6 (Version None)
Quarter: 2010Q3

REPORT INFORMATION
  Report Type: 
  Country: None (occurrence: None)
  Receive Date: 20100902
  Receipt Date: 20100825
  Transmission Date: 20110219
  Serious: Yes (Other)
  Sender: FDA-Public Use
  Company Number: NL-PFIZER INC-2010107004

PATIENT
  Sex: Male

DRUGS (10)
  1. LIPITOR [Suspect]
     Dosage: UNK
     Dates: start: 20090301
  2. PROMOCARD [Concomitant]
     Dosage: 30 MG, UNK
  3. PANADOL [Concomitant]
     Dosage: UNK
  4. NEXIUM [Concomitant]
     Dosage: 40 MG, UNK
  5. METOPROLOL - SLOW RELEASE [Concomitant]
     Dosage: 50 MG, UNK
  6. ISOSORBIDE [Concomitant]
     Dosage: 60 MG, UNK
  7. EZETROL [Concomitant]
     Dosage: 10 MG, UNK
  8. ATACAND [Concomitant]
     Dosage: 16 MG, UNK
  9. AMLODIPINE [Concomitant]
     Dosage: 10 MG, UNK
  10. ACETYLSALICYLIC ACID [Concomitant]
     Dosage: 80 MG, UNK

REACTIONS (3)
  - HAEMOPTYSIS [None]
  - PRODUCT TASTE ABNORMAL [None]
  - THROAT IRRITATION [None]
